FAERS Safety Report 10610761 (Version 1)
Quarter: 2014Q4

REPORT INFORMATION
  Report Type: Spontaneous
  Country: BR (occurrence: BR)
  Receive Date: 20141126
  Receipt Date: 20141126
  Transmission Date: 20150529
  Serious: Yes (Other)
  Sender: FDA-Public Use
  Company Number: CHPA2014BR015692

PATIENT
  Age: 45 Year
  Sex: Female

DRUGS (1)
  1. NICOTINELL [Suspect]
     Active Substance: NICOTINE
     Indication: SMOKING CESSATION THERAPY
     Dosage: 3 DF, QD
     Route: 062
     Dates: start: 2014

REACTIONS (10)
  - Hepatic steatosis [Unknown]
  - Blood pressure decreased [Not Recovered/Not Resolved]
  - Incorrect dose administered [Unknown]
  - Skin discolouration [Recovering/Resolving]
  - Nausea [Recovering/Resolving]
  - Somnolence [Recovering/Resolving]
  - Spinal pain [Recovering/Resolving]
  - Malaise [Recovering/Resolving]
  - Hypoaesthesia [Recovering/Resolving]
  - Chills [Recovering/Resolving]

NARRATIVE: CASE EVENT DATE: 20141113
